FAERS Safety Report 15684260 (Version 1)
Quarter: 2018Q4

REPORT INFORMATION
  Report Type: Spontaneous
  Country: NO (occurrence: NO)
  Receive Date: 20181204
  Receipt Date: 20181204
  Transmission Date: 20190205
  Serious: Yes (Disabling)
  Sender: FDA-Public Use
  Company Number: NO-ROCHE-2220702

PATIENT
  Age: 44 Year
  Sex: Female

DRUGS (3)
  1. AVASTIN [Concomitant]
     Active Substance: BEVACIZUMAB
     Indication: CERVIX CARCINOMA
     Route: 065
  2. TECENTRIQ [Suspect]
     Active Substance: ATEZOLIZUMAB
     Indication: CERVIX CARCINOMA
     Route: 065
     Dates: end: 201808
  3. OLAPARIB. [Concomitant]
     Active Substance: OLAPARIB
     Indication: CERVIX CARCINOMA

REACTIONS (9)
  - Asthenia [Unknown]
  - Pruritus [Unknown]
  - Skin disorder [Unknown]
  - Arthralgia [Unknown]
  - Dry skin [Unknown]
  - Neuropathy peripheral [Unknown]
  - Off label use [Unknown]
  - Skin discolouration [Unknown]
  - Intentional product use issue [Unknown]

NARRATIVE: CASE EVENT DATE: 201808
